FAERS Safety Report 4397180-3 (Version None)
Quarter: 2004Q2

REPORT INFORMATION
  Report Type: 
  Country: None (occurrence: None)
  Receive Date: 20040621
  Receipt Date: 20040223
  Transmission Date: 20050107
  Serious: Yes (Other)
  Sender: FDA-Public Use
  Company Number: USA-2004-0013330

PATIENT
  Sex: Female

DRUGS (3)
  1. OXYCONTIN [Suspect]
     Indication: PAIN
     Dosage: 30 MG, BID
  2. PERCOCET [Suspect]
     Dosage: MG, PRN
  3. HISTALIX [Concomitant]

REACTIONS (1)
  - OVERDOSE [None]
